FAERS Safety Report 20332173 (Version 4)
Quarter: 2022Q2

REPORT INFORMATION
  Report Type: Spontaneous
  Country: CA (occurrence: CA)
  Receive Date: 20220113
  Receipt Date: 20220601
  Transmission Date: 20220721
  Serious: Yes (Hospitalization, Other)
  Sender: FDA-Public Use
  Company Number: CA-AMERICAN REGENT INC-2022000080

PATIENT
  Age: 18 Year
  Sex: Female

DRUGS (2)
  1. VENOFER [Suspect]
     Active Substance: IRON SUCROSE
     Indication: Iron deficiency anaemia
     Dosage: UNK, SINGLE
     Route: 042
  2. VENOFER [Suspect]
     Active Substance: IRON SUCROSE
     Indication: Serum ferritin abnormal
     Dosage: 300 MG, MIXED IN 250 NS
     Route: 042
     Dates: start: 20211224, end: 20211224

REACTIONS (10)
  - Tremor [Recovering/Resolving]
  - Oxygen saturation decreased [Recovering/Resolving]
  - Muscle tightness [Unknown]
  - Nervousness [Unknown]
  - Tachycardia [Recovering/Resolving]
  - Dizziness [Recovering/Resolving]
  - Nausea [Recovering/Resolving]
  - Paraesthesia [Recovering/Resolving]
  - Incorrect product administration duration [Unknown]
  - Product quality issue [Unknown]

NARRATIVE: CASE EVENT DATE: 20211224
